FAERS Safety Report 17591420 (Version 4)
Quarter: 2020Q3

REPORT INFORMATION
  Report Type: Spontaneous
  Country: US (occurrence: US)
  Receive Date: 20200327
  Receipt Date: 20200723
  Transmission Date: 20201102
  Serious: No
  Sender: FDA-Public Use
  Company Number: US-VERTEX PHARMACEUTICALS-2020-006353

PATIENT
  Sex: Female
  Weight: 51 kg

DRUGS (7)
  1. PULMOZYME [Concomitant]
     Active Substance: DORNASE ALFA
  2. SINGULAIR [Concomitant]
     Active Substance: MONTELUKAST SODIUM
  3. SPRINTEC [Concomitant]
     Active Substance: ETHINYL ESTRADIOL\NORGESTIMATE
  4. TRIKAFTA [Suspect]
     Active Substance: ELEXACAFTOR\IVACAFTOR\TEZACAFTOR
     Indication: CYSTIC FIBROSIS
     Dosage: 100MG ELEXACAFTOR/50MG TEZACAFTOR/75MG IVACAFTOR/150MG IVACAFTOR, BID
     Route: 048
     Dates: start: 20200213
  5. CREON [Concomitant]
     Active Substance: PANCRELIPASE AMYLASE\PANCRELIPASE LIPASE\PANCRELIPASE PROTEASE
     Dosage: UNK
  6. PREVACID [Concomitant]
     Active Substance: LANSOPRAZOLE
     Dosage: UNK
  7. ALBUTEROL [SALBUTAMOL SULFATE] [Concomitant]
     Active Substance: ALBUTEROL SULFATE

REACTIONS (7)
  - Acne [Not Recovered/Not Resolved]
  - Constipation [Unknown]
  - Abdominal pain [Unknown]
  - Rash [Not Recovered/Not Resolved]
  - Headache [Unknown]
  - Fungal infection [Unknown]
  - Urinary tract infection [Unknown]

NARRATIVE: CASE EVENT DATE: 2020
